FAERS Safety Report 7666725-X (Version None)
Quarter: 2011Q3

REPORT INFORMATION
  Report Type: 
  Country: None (occurrence: None)
  Receive Date: 20110806
  Receipt Date: 20110510
  Transmission Date: 20111222
  Serious: No
  Sender: FDA-Public Use
  Company Number: US-ABBOTT-11P-163-0725060-00

PATIENT
  Sex: Male
  Weight: 81.72 kg

DRUGS (6)
  1. NIASPAN [Suspect]
  2. VITAMIN D [Concomitant]
     Indication: VITAMIN D DECREASED
  3. CRESTOR [Concomitant]
     Indication: BLOOD CHOLESTEROL INCREASED
  4. ASPIRIN [Concomitant]
     Indication: PRODUCT USED FOR UNKNOWN INDICATION
  5. NIASPAN [Suspect]
     Indication: BLOOD CHOLESTEROL INCREASED
  6. LOVAZA [Concomitant]
     Indication: BLOOD CHOLESTEROL INCREASED

REACTIONS (1)
  - BLOOD GLUCOSE INCREASED [None]
